FAERS Safety Report 22046009 (Version 1)
Quarter: 2023Q1

REPORT INFORMATION
  Report Type: Spontaneous
  Country: JP (occurrence: JP)
  Receive Date: 20230228
  Receipt Date: 20230228
  Transmission Date: 20230417
  Serious: Yes (Hospitalization)
  Sender: FDA-Public Use
  Company Number: JP-TEVA-2023-JP-2860684

PATIENT
  Age: 78 Year
  Sex: Male

DRUGS (5)
  1. PREDNISOLONE [Suspect]
     Active Substance: PREDNISOLONE
     Indication: Idiopathic inflammatory myopathy
     Dosage: 30 MILLIGRAM DAILY; 30 MG ONCE A DAY, FOR 2 WEEKS AND AFTER 2 WEEKS, A FURTHER REDUCTION OF 5 MG/DAY
     Route: 065
     Dates: start: 2021
  2. PREDNISOLONE [Suspect]
     Active Substance: PREDNISOLONE
     Dosage: 8 MILLIGRAM DAILY; 8 MG ONCE A DAY
     Route: 065
     Dates: start: 2021
  3. METHYLPREDNISOLONE [Concomitant]
     Active Substance: METHYLPREDNISOLONE
     Indication: Idiopathic inflammatory myopathy
     Dosage: 1000 MILLIGRAM DAILY; PULSE THERAPY FOR 3 DAYS, 1000 MG ONCE A DAY
     Route: 065
     Dates: start: 2021
  4. Immunoglobulin [Concomitant]
     Indication: Idiopathic inflammatory myopathy
     Dosage: 5000 MILLIGRAM DAILY; HIGH DOSE; FOR 5 DAYS, 5000 MG ONCE A DAY
     Route: 065
     Dates: start: 2021
  5. TACROLIMUS [Concomitant]
     Active Substance: TACROLIMUS
     Indication: Idiopathic inflammatory myopathy
     Dosage: 2 MILLIGRAM DAILY; 2 MG ONCE A DA
     Route: 065
     Dates: start: 2021

REACTIONS (1)
  - Alveolar proteinosis [Recovering/Resolving]

NARRATIVE: CASE EVENT DATE: 20210901
